FAERS Safety Report 5290498-1 (Version None)
Quarter: 2007Q2

REPORT INFORMATION
  Report Type: 
  Country: None (occurrence: None)
  Receive Date: 20070409
  Receipt Date: 20070326
  Transmission Date: 20071010
  Serious: Yes (Other)
  Sender: FDA-Public Use
  Company Number: PHBS2007ES05318

PATIENT
  Age: 48 Year

DRUGS (5)
  1. ZOLEDRONIC ACID [Suspect]
     Indication: OSTEOPOROSIS
     Dosage: 4 MG, UNK
     Dates: start: 20040301
  2. CALCIUM CARBONATE [Concomitant]
  3. CHOLECALCIFEROL [Concomitant]
  4. BORTEZOMIB [Concomitant]
  5. DEXAMETHASONE [Concomitant]

REACTIONS (4)
  - ABSCESS JAW [None]
  - FISTULA [None]
  - OSTEONECROSIS [None]
  - PAIN [None]
